FAERS Safety Report 6180913-3 (Version None)
Quarter: 2009Q2

REPORT INFORMATION
  Report Type: 
  Country: None (occurrence: None)
  Receive Date: 20090506
  Receipt Date: 20090424
  Transmission Date: 20091009
  Serious: Yes (Death, Other)
  Sender: FDA-Public Use
  Company Number: US-PFIZER INC-2009198528

PATIENT
  Sex: Male

DRUGS (1)
  1. VFEND [Suspect]
     Dosage: 200 MG, 1X/DAY

REACTIONS (1)
  - RESPIRATORY FAILURE [None]
